FAERS Safety Report 9251096 (Version 3)
Quarter: 2014Q1

REPORT INFORMATION
  Report Type: Spontaneous
  Country: US (occurrence: US)
  Receive Date: 20130424
  Receipt Date: 20140113
  Transmission Date: 20141002
  Serious: Yes (Hospitalization, Disabling, Other)
  Sender: FDA-Public Use
  Company Number: US-ASTRAZENECA-2013SE27200

PATIENT
  Age: 40 Year
  Sex: Female
  Weight: 87.1 kg

DRUGS (53)
  1. NEXIUM [Suspect]
     Indication: ABDOMINAL DISCOMFORT
     Route: 048
     Dates: start: 1998
  2. NEXIUM [Suspect]
     Indication: ULCER
     Route: 048
     Dates: start: 1998
  3. NEXIUM [Suspect]
     Indication: HERNIA
     Route: 048
     Dates: start: 1998
  4. NEXIUM [Suspect]
     Indication: GASTROOESOPHAGEAL REFLUX DISEASE
     Route: 048
     Dates: start: 1998
  5. NEXIUM [Suspect]
     Indication: ABDOMINAL DISCOMFORT
     Route: 048
     Dates: start: 1999, end: 2012
  6. NEXIUM [Suspect]
     Indication: ULCER
     Route: 048
     Dates: start: 1999, end: 2012
  7. NEXIUM [Suspect]
     Indication: HERNIA
     Route: 048
     Dates: start: 1999, end: 2012
  8. NEXIUM [Suspect]
     Indication: GASTROOESOPHAGEAL REFLUX DISEASE
     Route: 048
     Dates: start: 1999, end: 2012
  9. NEXIUM [Suspect]
     Indication: ABDOMINAL DISCOMFORT
     Route: 048
     Dates: start: 20020205
  10. NEXIUM [Suspect]
     Indication: ULCER
     Route: 048
     Dates: start: 20020205
  11. NEXIUM [Suspect]
     Indication: HERNIA
     Route: 048
     Dates: start: 20020205
  12. NEXIUM [Suspect]
     Indication: GASTROOESOPHAGEAL REFLUX DISEASE
     Route: 048
     Dates: start: 20020205
  13. PRILOSEC [Suspect]
     Indication: GASTROOESOPHAGEAL REFLUX DISEASE
     Route: 048
     Dates: start: 1998, end: 2012
  14. PRILOSEC [Suspect]
     Indication: ABDOMINAL DISCOMFORT
     Route: 048
     Dates: start: 1998, end: 2012
  15. PRILOSEC [Suspect]
     Indication: GASTROOESOPHAGEAL REFLUX DISEASE
     Route: 048
     Dates: start: 20020205
  16. PRILOSEC [Suspect]
     Indication: ABDOMINAL DISCOMFORT
     Route: 048
     Dates: start: 20020205
  17. BENTYL [Concomitant]
     Indication: ABDOMINAL DISCOMFORT
  18. PEPTO BISMOL [Concomitant]
     Dosage: OTC, AS NEEDED
     Dates: start: 1998
  19. GAVISCON [Concomitant]
     Dosage: OTC, AS NEEDED
     Dates: start: 1998
  20. TUMS [Concomitant]
     Indication: DYSPEPSIA
     Dosage: OTC, AS NEEDED
     Dates: start: 1998
  21. TUMS [Concomitant]
     Indication: GASTROOESOPHAGEAL REFLUX DISEASE
     Dosage: OTC, AS NEEDED
     Dates: start: 1998
  22. RANITIDINE [Concomitant]
     Dosage: OTC, AS NEEDED
     Dates: start: 1998
  23. TAGAMET [Concomitant]
     Dosage: OTC, AS NEEDED
     Dates: start: 1998
  24. TAGAMET [Concomitant]
  25. SUCRALFATE [Concomitant]
     Indication: ABDOMINAL DISCOMFORT
  26. TRAZODONE [Concomitant]
     Indication: ANTIDEPRESSANT THERAPY
  27. BETHANECHOL [Concomitant]
     Indication: BLADDER DISORDER
  28. PHENEGRAN [Concomitant]
     Indication: ABDOMINAL DISCOMFORT
  29. ISOSORB MONO [Concomitant]
     Indication: BLOOD PRESSURE ABNORMAL
  30. LISINOPRIL [Concomitant]
     Indication: BLOOD PRESSURE ABNORMAL
  31. CLONOPIN [Concomitant]
     Indication: ANXIETY
  32. CLONOPIN [Concomitant]
     Indication: NEURALGIA
  33. ZANAFLEX [Concomitant]
     Indication: MUSCLE RELAXANT THERAPY
  34. NEUROTONIN [Concomitant]
     Indication: NEURALGIA
  35. LORTAB [Concomitant]
     Indication: PAIN
     Dosage: 7.5/650
  36. PANTOPRAZOLE [Concomitant]
     Dates: start: 20121022
  37. GABAPENTIN [Concomitant]
     Route: 048
     Dates: start: 20121022
  38. PREGABALIN [Concomitant]
     Dates: start: 20121022
  39. PROMETHAZINE HCL [Concomitant]
     Dates: start: 20121022
  40. TOPROL XL [Concomitant]
     Dates: start: 20121022
  41. NITROBID [Concomitant]
     Indication: BLOOD PRESSURE ABNORMAL
  42. COLESTID [Concomitant]
     Indication: BONE DISORDER
  43. COLESTID [Concomitant]
     Indication: ABDOMINAL DISCOMFORT
  44. CELEBRAX [Concomitant]
     Indication: ARTHRITIS
  45. SKELAXIN [Concomitant]
     Indication: MUSCLE RELAXANT THERAPY
  46. WARFARIN [Concomitant]
     Dates: start: 20121023
  47. ALKA SELTZER [Concomitant]
     Dosage: OTC, AS NEEDED
     Dates: start: 1998
  48. MILK OF MAGNESIA [Concomitant]
     Dosage: OTC, AS NEEDED
     Dates: start: 1998
  49. MYLANTA [Concomitant]
     Dosage: OTC, AS NEEDED
     Dates: start: 1998
  50. CLARITIN [Concomitant]
     Indication: SINUS DISORDER
  51. COLESTIPOL [Concomitant]
     Indication: ABDOMINAL DISCOMFORT
  52. PHENERGAN [Concomitant]
     Indication: ABDOMINAL DISCOMFORT
  53. HYDROCODONE/APAP [Concomitant]
     Dosage: 7.5/325 MG

REACTIONS (19)
  - Myocardial infarction [Unknown]
  - Arthropathy [Unknown]
  - Cardiac disorder [Unknown]
  - Enterococcal infection [Unknown]
  - Road traffic accident [Unknown]
  - Staphylococcal infection [Unknown]
  - Osteoporosis [Unknown]
  - Bone disorder [Unknown]
  - Multiple fractures [Unknown]
  - Teeth brittle [Unknown]
  - Osteoarthritis [Not Recovered/Not Resolved]
  - Back pain [Unknown]
  - Arthropod bite [Unknown]
  - Hand fracture [Unknown]
  - Nausea [Unknown]
  - Ankle fracture [Unknown]
  - Nervous system disorder [Unknown]
  - Depression [Unknown]
  - Arthritis [Unknown]
